FAERS Safety Report 7473073-X (Version None)
Quarter: 2011Q2

REPORT INFORMATION
  Report Type: 
  Country: None (occurrence: None)
  Receive Date: 20110511
  Receipt Date: 20110502
  Transmission Date: 20111010
  Serious: Yes (Death)
  Sender: FDA-Public Use
  Company Number: CA-ELI_LILLY_AND_COMPANY-CA201105000648

PATIENT
  Sex: Male

DRUGS (3)
  1. METHADONE HCL [Concomitant]
  2. CYMBALTA [Suspect]
     Indication: MAJOR DEPRESSION
     Dosage: 60 MG, UNKNOWN
     Dates: end: 20101101
  3. ALCOHOL [Concomitant]

REACTIONS (1)
  - DEATH [None]
